FAERS Safety Report 4490054-9 (Version None)
Quarter: 2004Q4

REPORT INFORMATION
  Report Type: 
  Country: None (occurrence: None)
  Receive Date: 20041101
  Receipt Date: 20041027
  Transmission Date: 20050328
  Serious: Yes (Other)
  Sender: FDA-Public Use
  Company Number: PHBS2004JP14477

PATIENT
  Sex: Male

DRUGS (1)
  1. NEORAL [Suspect]
     Indication: MYELODYSPLASTIC SYNDROME
     Dosage: 250 MG/D
     Route: 048

REACTIONS (1)
  - HENOCH-SCHONLEIN PURPURA [None]
